FAERS Safety Report 6186771-5 (Version None)
Quarter: 2009Q2

REPORT INFORMATION
  Report Type: 
  Country: None (occurrence: None)
  Receive Date: 20090508
  Receipt Date: 20090424
  Transmission Date: 20091009
  Serious: Yes (Hospitalization)
  Sender: FDA-Public Use
  Company Number: 09-050

PATIENT
  Age: 86 Year
  Sex: Female
  Weight: 52.1637 kg

DRUGS (20)
  1. CEFEPIME [Suspect]
     Indication: OSTEOMYELITIS
     Dosage: 2 GRAMS EVERY 12 HRS, IV
     Route: 042
     Dates: start: 20081001, end: 20081029
  2. CIPRO [Suspect]
     Dates: end: 20081007
  3. METHADONE HCL [Concomitant]
  4. POTASSIUM CHLORIDE [Concomitant]
  5. OS-CAL (CALCIUM SUPPLEMENTS) [Concomitant]
  6. MUTIVITAMIN [Concomitant]
  7. FIBER TABLETS [Concomitant]
  8. ASPIRIN [Concomitant]
  9. PREDNISONE [Concomitant]
  10. LASIX [Concomitant]
  11. ISOSORBIDE [Concomitant]
  12. ATENOLOL [Concomitant]
  13. PROTONIX [Concomitant]
  14. COLACE (DOCUSATE) [Concomitant]
  15. PRINIVIL [Concomitant]
  16. LIPITOR [Concomitant]
  17. MIRALAX [Concomitant]
  18. WELLBUTRIN [Concomitant]
  19. TRAVATAN [Concomitant]
  20. CYMBALTA [Concomitant]

REACTIONS (6)
  - AGITATION [None]
  - CONVULSION [None]
  - CRYING [None]
  - DEPRESSION [None]
  - HALLUCINATION [None]
  - LOSS OF CONSCIOUSNESS [None]
